FAERS Safety Report 9908161 (Version 1)
Quarter: 2014Q1

REPORT INFORMATION
  Report Type: Spontaneous
  Country: US (occurrence: None)
  Receive Date: 20140212
  Receipt Date: 20140212
  Transmission Date: 20141002
  Serious: No
  Sender: FDA-Public Use
  Company Number: None

PATIENT
  Age: 84 Year
  Sex: Female
  Weight: 86.64 kg

DRUGS (11)
  1. WELCHOL [Suspect]
     Indication: DIABETES MELLITUS
     Dosage: 3.75 1 PACKET DAILY MIX W/WATER
     Dates: start: 20131230, end: 20140105
  2. WELCHOL [Suspect]
     Indication: BLOOD CHOLESTEROL
     Dosage: 3.75 1 PACKET DAILY MIX W/WATER
     Dates: start: 20131230, end: 20140105
  3. DILTIAZEM [Concomitant]
  4. METROPOEX [Concomitant]
  5. HYDROCHLOROTHIAZIDE [Concomitant]
  6. ALPRAZOLAM [Concomitant]
  7. ZYRTEC [Concomitant]
  8. ALLEGRA [Concomitant]
  9. VITAMIN D [Concomitant]
  10. VITAMIN B 12 [Concomitant]
  11. CRANBERRY [Concomitant]

REACTIONS (3)
  - Pruritus [None]
  - Eye pruritus [None]
  - Reaction to drug excipients [None]
